FAERS Safety Report 5133045-7 (Version None)
Quarter: 2006Q4

REPORT INFORMATION
  Report Type: 
  Country: None (occurrence: None)
  Receive Date: 20061017
  Receipt Date: 20060929
  Transmission Date: 20070319
  Serious: Yes (Hospitalization)
  Sender: FDA-Public Use
  Company Number: 2006ADE/DICLO-021

PATIENT
  Age: 58 Year
  Sex: Female

DRUGS (1)
  1. DICLOFENAC [Suspect]
     Indication: ARTHRALGIA
     Dosage: ORAL
     Route: 048
     Dates: start: 20060821, end: 20060826

REACTIONS (5)
  - EYELID PTOSIS [None]
  - HAEMATURIA [None]
  - INFLUENZA LIKE ILLNESS [None]
  - PUPILS UNEQUAL [None]
  - RASH PRURITIC [None]
